FAERS Safety Report 22171042 (Version 2)
Quarter: 2023Q2

REPORT INFORMATION
  Report Type: Spontaneous
  Country: US (occurrence: US)
  Receive Date: 20230404
  Receipt Date: 20230411
  Transmission Date: 20230721
  Serious: No
  Sender: FDA-Public Use
  Company Number: US-TAKEDA-2023TUS034534

PATIENT

DRUGS (6)
  1. GLASSIA [Suspect]
     Active Substance: .ALPHA.1-PROTEINASE INHIBITOR HUMAN
     Indication: Alpha-1 antitrypsin deficiency
     Dosage: UNK
     Route: 042
     Dates: start: 202201, end: 202208
  2. GLASSIA [Suspect]
     Active Substance: .ALPHA.1-PROTEINASE INHIBITOR HUMAN
     Indication: Alpha-1 antitrypsin deficiency
     Dosage: UNK
     Route: 042
     Dates: start: 202201, end: 202208
  3. GLASSIA [Suspect]
     Active Substance: .ALPHA.1-PROTEINASE INHIBITOR HUMAN
     Dosage: UNK
     Route: 042
     Dates: start: 202302
  4. GLASSIA [Suspect]
     Active Substance: .ALPHA.1-PROTEINASE INHIBITOR HUMAN
     Dosage: UNK
     Route: 042
     Dates: start: 202302
  5. TRELEGY ELLIPTA [Concomitant]
     Active Substance: FLUTICASONE FUROATE\UMECLIDINIUM BROMIDE\VILANTEROL TRIFENATATE
     Indication: Alpha-1 antitrypsin deficiency
     Dosage: UNK
     Route: 050
  6. ALBUTEROL [Concomitant]
     Active Substance: ALBUTEROL
     Indication: Alpha-1 antitrypsin deficiency
     Dosage: UNK
     Route: 050

REACTIONS (4)
  - Viral infection [Recovered/Resolved]
  - Bronchitis [Recovered/Resolved]
  - Chronic obstructive pulmonary disease [Recovered/Resolved]
  - Inappropriate schedule of product administration [Recovered/Resolved]

NARRATIVE: CASE EVENT DATE: 20230101
